FAERS Safety Report 23579612 (Version 1)
Quarter: 2024Q1

REPORT INFORMATION
  Report Type: Spontaneous
  Country: US (occurrence: US)
  Receive Date: 20240229
  Receipt Date: 20240229
  Transmission Date: 20240409
  Serious: No
  Sender: FDA-Public Use
  Company Number: US-009507513-2402USA001125

PATIENT
  Age: 29 Year
  Sex: Female

DRUGS (1)
  1. KEYTRUDA [Suspect]
     Active Substance: PEMBROLIZUMAB
     Dosage: 200 MG EVERY 21 DAYS, STRENGTH 100MG

REACTIONS (2)
  - Maternal exposure during pregnancy [Unknown]
  - No adverse event [Unknown]
